FAERS Safety Report 7805500-X (Version None)
Quarter: 2011Q4

REPORT INFORMATION
  Report Type: 
  Country: None (occurrence: None)
  Receive Date: 20111010
  Receipt Date: 20111003
  Transmission Date: 20120403
  Serious: Yes (Other)
  Sender: FDA-Public Use
  Company Number: PHHY2011CA87478

PATIENT
  Sex: Female

DRUGS (7)
  1. OXYCONTIN [Concomitant]
  2. SYNTHROID [Concomitant]
  3. EFFEXOR [Concomitant]
  4. ACIDOPHILUS [Concomitant]
  5. OXYCET [Concomitant]
  6. ATIVAN [Concomitant]
  7. ZOLEDRONOC ACID [Suspect]
     Indication: OSTEOPOROSIS
     Dosage: 5 MG, UNK
     Route: 042
     Dates: start: 20101019

REACTIONS (1)
  - HELICOBACTER INFECTION [None]
